FAERS Safety Report 12605781 (Version 1)
Quarter: 2016Q3

REPORT INFORMATION
  Report Type: Report from Study
  Country: BR (occurrence: BR)
  Receive Date: 20160729
  Receipt Date: 20160729
  Transmission Date: 20161109
  Serious: Yes (Hospitalization)
  Sender: FDA-Public Use
  Company Number: BR-ROCHE-1805020

PATIENT
  Age: 64 Year
  Sex: Female
  Weight: 62 kg

DRUGS (5)
  1. MABTHERA [Suspect]
     Active Substance: RITUXIMAB
     Indication: RHEUMATOID ARTHRITIS
     Route: 042
     Dates: start: 20120328, end: 201211
  2. ACTEMRA [Suspect]
     Active Substance: TOCILIZUMAB
     Indication: RHEUMATOID ARTHRITIS
     Dosage: FORM: INFUSION STRENGTH: 20 ML/ML
     Route: 042
     Dates: start: 20090807, end: 20120104
  3. ACTEMRA [Suspect]
     Active Substance: TOCILIZUMAB
     Route: 042
     Dates: start: 201203
  4. MABTHERA [Suspect]
     Active Substance: RITUXIMAB
     Dosage: ON 20/AUG/2015, RECEIVED LAST DOSE
     Route: 042
     Dates: start: 20120405
  5. ATENOLOL. [Concomitant]
     Active Substance: ATENOLOL
     Dosage: HALF TABLET IN THE MORNING AND HALF TABLET AT NIGHT
     Route: 065

REACTIONS (7)
  - Arthralgia [Not Recovered/Not Resolved]
  - Asthenia [Recovered/Resolved]
  - Weight decreased [Unknown]
  - Viral infection [Unknown]
  - Muscle rigidity [Unknown]
  - Immunodeficiency [Unknown]
  - Apathy [Unknown]

NARRATIVE: CASE EVENT DATE: 201511
